FAERS Safety Report 7359951-0 (Version None)
Quarter: 2011Q1

REPORT INFORMATION
  Report Type: 
  Country: None (occurrence: None)
  Receive Date: 20110317
  Receipt Date: 20110314
  Transmission Date: 20110831
  Serious: Yes (Other)
  Sender: FDA-Public Use
  Company Number: FR-ELI_LILLY_AND_COMPANY-FR201103004904

PATIENT
  Age: 38 Year
  Sex: Male

DRUGS (2)
  1. ZYPADHERA [Suspect]
     Indication: SCHIZOPHRENIA
     Dosage: 300 MG, EVERY 2 WEEKS
     Route: 030
  2. ZYPREXA [Concomitant]
     Dosage: UNK, UNKNOWN

REACTIONS (3)
  - INCOHERENT [None]
  - AMNESIA [None]
  - CONFUSIONAL STATE [None]
